FAERS Safety Report 12203471 (Version 3)
Quarter: 2016Q2

REPORT INFORMATION
  Report Type: Spontaneous
  Country: US (occurrence: US)
  Receive Date: 20160323
  Receipt Date: 20160603
  Transmission Date: 20160815
  Serious: Yes (Other)
  Sender: FDA-Public Use
  Company Number: US-TEVA-639481ACC

PATIENT
  Age: 34 Year
  Sex: Female
  Weight: 74.91 kg

DRUGS (3)
  1. LEVOTHYROXINE. [Concomitant]
     Active Substance: LEVOTHYROXINE
     Indication: HYPOTHYROIDISM
  2. PARAGARD T 380A [Suspect]
     Active Substance: COPPER
     Indication: CONTRACEPTION
     Dates: start: 20060301
  3. PARAGARD T 380A [Suspect]
     Active Substance: COPPER
     Dates: start: 20160211, end: 20160316

REACTIONS (3)
  - Complication associated with device [Recovered/Resolved]
  - Device breakage [Recovered/Resolved]
  - Unintentional medical device removal [Recovered/Resolved]

NARRATIVE: CASE EVENT DATE: 20160211
